FAERS Safety Report 7432580-6 (Version None)
Quarter: 2011Q2

REPORT INFORMATION
  Report Type: 
  Country: None (occurrence: None)
  Receive Date: 20110422
  Receipt Date: 20110412
  Transmission Date: 20111010
  Serious: No
  Sender: FDA-Public Use
  Company Number: US-B.I. PHARMACEUTICALS,INC./RIDGEFIELD-2011-BP-10602BP

PATIENT
  Sex: Male

DRUGS (7)
  1. CRESTOR [Concomitant]
     Indication: BLOOD CHOLESTEROL INCREASED
     Dosage: 5 MG
  2. ASPIRIN [Concomitant]
     Indication: ATRIAL FIBRILLATION
     Dosage: 81 MG
  3. COQ10 [Concomitant]
     Indication: HYPERTENSION
     Dosage: 100 MG
  4. VITAMINS [Concomitant]
     Indication: PROPHYLAXIS
     Dosage: 2000 MG
  5. LOVAZA [Concomitant]
     Indication: HYPERTENSION
     Dosage: 1000 MG
  6. PRADAXA [Suspect]
     Indication: ATRIAL FIBRILLATION
     Dosage: 300 MG
     Route: 048
     Dates: start: 20110408
  7. ATENOLOL [Concomitant]
     Indication: HYPERTENSION
     Dosage: 25 MG

REACTIONS (1)
  - FLUSHING [None]
